FAERS Safety Report 11081800 (Version 1)
Quarter: 2015Q2

REPORT INFORMATION
  Report Type: Spontaneous
  Country: US (occurrence: US)
  Receive Date: 20150501
  Receipt Date: 20150501
  Transmission Date: 20150821
  Serious: No
  Sender: FDA-Public Use
  Company Number: US-TEVA-555747USA

PATIENT
  Sex: Female
  Weight: 83.99 kg

DRUGS (1)
  1. NUVIGIL [Suspect]
     Active Substance: ARMODAFINIL
     Indication: SLEEP APNOEA SYNDROME
     Dates: start: 2013

REACTIONS (5)
  - Somnolence [Not Recovered/Not Resolved]
  - Fatigue [Not Recovered/Not Resolved]
  - Blood blister [Not Recovered/Not Resolved]
  - Skin discolouration [Not Recovered/Not Resolved]
  - Granuloma [Not Recovered/Not Resolved]

NARRATIVE: CASE EVENT DATE: 2014
